FAERS Safety Report 4404722-8 (Version None)
Quarter: 2004Q3

REPORT INFORMATION
  Report Type: 
  Country: None (occurrence: None)
  Receive Date: 20040722
  Receipt Date: 20040713
  Transmission Date: 20050211
  Serious: Yes (Hospitalization, Other)
  Sender: FDA-Public Use
  Company Number: US-GLAXOSMITHKLINE-A0518989A

PATIENT
  Sex: Female

DRUGS (3)
  1. SEREVENT [Suspect]
     Indication: ASTHMA
     Route: 055
  2. SEREVENT [Suspect]
     Route: 055
  3. FLOVENT [Suspect]
     Indication: ASTHMA
     Route: 055

REACTIONS (4)
  - BENIGN CARDIAC NEOPLASM [None]
  - DYSPNOEA [None]
  - IMPAIRED HEALING [None]
  - THERAPEUTIC RESPONSE DECREASED [None]
